FAERS Safety Report 5470855-0 (Version None)
Quarter: 2007Q3

REPORT INFORMATION
  Report Type: 
  Country: None (occurrence: None)
  Receive Date: 20070928
  Receipt Date: 20070917
  Transmission Date: 20080115
  Serious: Yes (Hospitalization)
  Sender: FDA-Public Use
  Company Number: US-ELI_LILLY_AND_COMPANY-US200709003351

PATIENT
  Age: 53 Year
  Sex: Female

DRUGS (5)
  1. CYMBALTA [Suspect]
     Indication: NEUROPATHY
     Dosage: 30 MG, UNK
     Dates: start: 20060601
  2. CYMBALTA [Suspect]
     Dosage: 60 MG, UNK
  3. CYMBALTA [Suspect]
     Dosage: 120 MG, UNK
  4. CYMBALTA [Suspect]
     Dosage: 60 MG, UNK
  5. CYMBALTA [Suspect]
     Dosage: 30 MG, UNK

REACTIONS (8)
  - ANXIETY [None]
  - DYSPNOEA [None]
  - FEELING ABNORMAL [None]
  - JOINT ARTHROPLASTY [None]
  - NAUSEA [None]
  - PARAESTHESIA [None]
  - TENSION [None]
  - VOMITING [None]
